FAERS Safety Report 14274140 (Version 2)
Quarter: 2018Q1

REPORT INFORMATION
  Report Type: Spontaneous
  Country: CH (occurrence: CH)
  Receive Date: 20171211
  Receipt Date: 20180327
  Transmission Date: 20180508
  Serious: Yes (Hospitalization, Other)
  Sender: FDA-Public Use
  Company Number: CH-OTSUKA-2017_017779

PATIENT
  Age: 46 Year
  Sex: Female

DRUGS (9)
  1. SERTRALINE [Suspect]
     Active Substance: SERTRALINE HYDROCHLORIDE
     Indication: PRODUCT USED FOR UNKNOWN INDICATION
     Dosage: UNK
     Route: 048
     Dates: start: 2016, end: 2017
  2. ZOLOFT [Concomitant]
     Active Substance: SERTRALINE HYDROCHLORIDE
     Indication: PRODUCT USED FOR UNKNOWN INDICATION
     Dosage: UNKNOWN
     Route: 065
     Dates: start: 2016, end: 2017
  3. ABILIFY [Suspect]
     Active Substance: ARIPIPRAZOLE
     Dosage: 20 MG DAILY, ORAL ADMINISTRATION
     Route: 048
     Dates: start: 201703, end: 201707
  4. EUTHYROX [Suspect]
     Active Substance: LEVOTHYROXINE SODIUM
     Indication: HYPOTHYROIDISM
     Dosage: 100 MCG DAILY, ORAL ADMINISTRATION
     Route: 048
     Dates: start: 2017
  5. ABILIFY [Suspect]
     Active Substance: ARIPIPRAZOLE
     Indication: BIPOLAR I DISORDER
     Dosage: UNK
     Route: 048
     Dates: start: 2016, end: 201703
  6. IMOVANE [Suspect]
     Active Substance: ZOPICLONE
     Indication: PRODUCT USED FOR UNKNOWN INDICATION
     Dosage: 7,5 MG DAILY, ORAL ADMINISTRATION
     Route: 048
     Dates: start: 201704
  7. ATARAX [Suspect]
     Active Substance: HYDROXYZINE HYDROCHLORIDE
     Indication: PRODUCT USED FOR UNKNOWN INDICATION
     Dosage: 25 MG DAILY, ORAL ADMINISTRATION
     Route: 048
     Dates: start: 201704
  8. LITHIOFOR [Suspect]
     Active Substance: LITHIUM SULFATE
     Indication: BIPOLAR I DISORDER
     Dosage: 600 MG TWICE DAILY, ORAL ADMINISTRATION
     Route: 048
     Dates: start: 201707
  9. CIRCADIN [Suspect]
     Active Substance: MELATONIN
     Indication: PRODUCT USED FOR UNKNOWN INDICATION
     Dosage: 2 MG DAILY, ORAL ADMINISTRATION
     Route: 048
     Dates: start: 201704

REACTIONS (6)
  - Mania [Unknown]
  - Abortion spontaneous [Recovered/Resolved]
  - Extrapyramidal disorder [Unknown]
  - Product use issue [Unknown]
  - Exposure during pregnancy [Unknown]
  - Depression [Unknown]

NARRATIVE: CASE EVENT DATE: 2017
